FAERS Safety Report 6261696-5 (Version None)
Quarter: 2009Q3

REPORT INFORMATION
  Report Type: 
  Country: None (occurrence: None)
  Receive Date: 20090709
  Receipt Date: 20090601
  Transmission Date: 20100115
  Serious: Yes (Other)
  Sender: FDA-Public Use
  Company Number: DE-ROCHE-634521

PATIENT
  Sex: Female
  Weight: 55 kg

DRUGS (2)
  1. BONIVA [Suspect]
     Indication: OSTEOPOROSIS
     Route: 042
     Dates: start: 20061201
  2. ARAVA [Concomitant]

REACTIONS (1)
  - BONE MARROW OEDEMA [None]
